FAERS Safety Report 13973211 (Version 1)
Quarter: 2017Q3

REPORT INFORMATION
  Report Type: Spontaneous
  Country: US (occurrence: US)
  Receive Date: 20170914
  Receipt Date: 20170914
  Transmission Date: 20171128
  Serious: No
  Sender: FDA-Public Use
  Company Number: US-ASTELLAS-2017US016516

PATIENT
  Age: 63 Year
  Sex: Male

DRUGS (1)
  1. XTANDI [Suspect]
     Active Substance: ENZALUTAMIDE
     Indication: PROSTATE CANCER
     Route: 048

REACTIONS (25)
  - Hypoaesthesia oral [Unknown]
  - Insomnia [Unknown]
  - Intervertebral disc protrusion [Unknown]
  - Tooth disorder [Unknown]
  - Somnolence [Unknown]
  - Nausea [Unknown]
  - Groin pain [Unknown]
  - Fall [Unknown]
  - Weight decreased [Unknown]
  - Arthritis [Unknown]
  - Pain [Unknown]
  - Arthralgia [Unknown]
  - Constipation [Unknown]
  - Back pain [Unknown]
  - Decreased appetite [Unknown]
  - Orthostatic hypotension [Unknown]
  - Liver disorder [Unknown]
  - Abdominal discomfort [Unknown]
  - Fatigue [Unknown]
  - Dizziness [Unknown]
  - Eye pain [Unknown]
  - Depression [Unknown]
  - Muscle spasms [Unknown]
  - Pain in extremity [Unknown]
  - Eye allergy [Unknown]

NARRATIVE: CASE EVENT DATE: 201705
